FAERS Safety Report 15155745 (Version 1)
Quarter: 2018Q3

REPORT INFORMATION
  Report Type: Spontaneous
  Country: US (occurrence: US)
  Receive Date: 20180620
  Receipt Date: 20180620
  Transmission Date: 20181010
  Serious: Yes (Other)
  Sender: FDA-Public Use
  Company Number: None

PATIENT
  Age: 41 Year
  Sex: Female
  Weight: 55.35 kg

DRUGS (12)
  1. CAL/MAG [Concomitant]
  2. IRON [Concomitant]
     Active Substance: IRON
  3. MULTIVITAMIN [Concomitant]
     Active Substance: VITAMINS
  4. SEROQUEL [Concomitant]
     Active Substance: QUETIAPINE FUMARATE
  5. LAMICTAL [Concomitant]
     Active Substance: LAMOTRIGINE
  6. TOPAMAX [Concomitant]
     Active Substance: TOPIRAMATE
  7. PARNATE [Concomitant]
     Active Substance: TRANYLCYPROMINE SULFATE
  8. ALBUTEROL. [Concomitant]
     Active Substance: ALBUTEROL
  9. CLONAZEPAM (GENERIC FOR KLONOPIN) [Suspect]
     Active Substance: CLONAZEPAM
     Indication: ANXIETY
     Dosage: ?          QUANTITY:1 TABLET(S);?
     Route: 048
     Dates: start: 20180611
  10. KLONOPIN [Concomitant]
     Active Substance: CLONAZEPAM
  11. BOTOX [Concomitant]
     Active Substance: ONABOTULINUMTOXINA
  12. VITAMIN D [Concomitant]
     Active Substance: CHOLECALCIFEROL

REACTIONS (3)
  - Symptom recurrence [None]
  - Product formulation issue [None]
  - Product substitution issue [None]

NARRATIVE: CASE EVENT DATE: 20180620
